FAERS Safety Report 6298996-9 (Version None)
Quarter: 2009Q3

REPORT INFORMATION
  Report Type: 
  Country: None (occurrence: None)
  Receive Date: 20090804
  Receipt Date: 20090721
  Transmission Date: 20100115
  Serious: Yes (Death)
  Sender: FDA-Public Use
  Company Number: ADE2009-0760

PATIENT
  Age: 63 Year
  Sex: Male

DRUGS (6)
  1. CITALOPRAM [Suspect]
     Dosage: 20MG
     Dates: start: 20090301
  2. APIDRA [Concomitant]
  3. ASPIRIN [Concomitant]
  4. LANSOPRAZOLE [Concomitant]
  5. LANTUS [Concomitant]
  6. SIMVASTATIN [Concomitant]

REACTIONS (1)
  - DEATH [None]
